FAERS Safety Report 10399083 (Version 1)
Quarter: 2014Q3

REPORT INFORMATION
  Report Type: Report from Study
  Country: US (occurrence: US)
  Receive Date: 20140821
  Receipt Date: 20140821
  Transmission Date: 20150326
  Serious: Yes (Other)
  Sender: FDA-Public Use
  Company Number: US-B.I. PHARMACEUTICALS,INC./RIDGEFIELD-2014-BI-38789GD

PATIENT
  Age: 43 Year
  Sex: Female

DRUGS (2)
  1. PRADAXA [Suspect]
     Active Substance: DABIGATRAN ETEXILATE MESYLATE
     Indication: THROMBOSIS PROPHYLAXIS
     Dosage: 150 MG
     Route: 048
  2. HEPARIN LMW [Suspect]
     Active Substance: UNSPECIFIED INGREDIENT
     Indication: THROMBOSIS PROPHYLAXIS
     Route: 065

REACTIONS (9)
  - Vascular pseudoaneurysm [Unknown]
  - Oedema peripheral [Unknown]
  - Arterial bruit [Unknown]
  - Treatment failure [Unknown]
  - Chest pain [Unknown]
  - Haematoma [Unknown]
  - Cerebral infarction [Recovered/Resolved]
  - Endocarditis noninfective [Recovered/Resolved]
  - Deep vein thrombosis [Recovered/Resolved]
